FAERS Safety Report 8009048-1 (Version None)
Quarter: 2011Q4

REPORT INFORMATION
  Report Type: 
  Country: None (occurrence: None)
  Receive Date: 20111227
  Receipt Date: 20111212
  Transmission Date: 20120403
  Serious: Yes (Other)
  Sender: FDA-Public Use
  Company Number: JP-WATSON-2011-22183

PATIENT
  Age: 56 Year
  Sex: Female

DRUGS (2)
  1. GLIMEPIRIDE [Suspect]
     Indication: HYPERGLYCAEMIA
     Dosage: 1 MG, DAILY
  2. METFORMIN HCL [Suspect]
     Indication: HYPERGLYCAEMIA
     Dosage: 750 MG, DAILY

REACTIONS (1)
  - LIVER FUNCTION TEST ABNORMAL [None]
